FAERS Safety Report 6722250-1 (Version None)
Quarter: 2010Q2

REPORT INFORMATION
  Report Type: 
  Country: None (occurrence: None)
  Receive Date: 20100505
  Receipt Date: 20100118
  Transmission Date: 20101027
  Serious: No
  Sender: FDA-Public Use
  Company Number: WAES 1001USA01615

PATIENT
  Age: 67 Year
  Sex: Female

DRUGS (7)
  1. ISENTRESS [Suspect]
     Indication: HIV INFECTION
     Dosage: 400 MG UNK UNK
     Dates: start: 20100103
  2. ACTOS [Concomitant]
  3. GLIPIZIDE [Concomitant]
  4. PLAVIX [Concomitant]
  5. PREVACID [Concomitant]
  6. SUSTIVA [Concomitant]
  7. VITAMINS (UNSPECIFIED) [Concomitant]

REACTIONS (1)
  - BLOOD GLUCOSE INCREASED [None]
